FAERS Safety Report 8434257-7 (Version None)
Quarter: 2012Q2

REPORT INFORMATION
  Report Type: 
  Country: None (occurrence: None)
  Receive Date: 20120613
  Receipt Date: 20120601
  Transmission Date: 20120825
  Serious: Yes (Hospitalization)
  Sender: FDA-Public Use
  Company Number: JP-UCBSA-058587

PATIENT
  Age: 45 Year
  Sex: Female

DRUGS (8)
  1. CIMZIA [Suspect]
     Indication: RHEUMATOID ARTHRITIS
     Route: 058
     Dates: start: 20101027
  2. METHOTREXATE [Concomitant]
     Dates: start: 20110324
  3. TEPRENONE [Concomitant]
     Dosage: DAILY DOSE : 100 MG
     Dates: start: 20091216
  4. CIMZIA [Suspect]
     Route: 058
     Dates: start: 20090703, end: 20101014
  5. FOLIC ACID [Concomitant]
     Dates: start: 20110324
  6. OLMESARTAN MEDOXOMIL [Concomitant]
     Dosage: DAILY DOSE: 20 MG
     Dates: start: 20120412
  7. AZELNIDIPINE [Concomitant]
     Dosage: DAILY DOSE: 16 MG
     Dates: start: 20120412
  8. CELECOXIB [Concomitant]
     Dosage: DAILY DOSE:200 MG
     Dates: start: 20091216

REACTIONS (1)
  - SUDDEN HEARING LOSS [None]
